FAERS Safety Report 20320416 (Version 1)
Quarter: 2022Q1

REPORT INFORMATION
  Report Type: Report from Study
  Country: US (occurrence: US)
  Receive Date: 20220111
  Receipt Date: 20220111
  Transmission Date: 20220423
  Serious: No
  Sender: FDA-Public Use
  Company Number: US-NOVARTISTESTPH-NVSC2021US297212

PATIENT
  Sex: Male

DRUGS (4)
  1. ENTACAPONE [Suspect]
     Active Substance: ENTACAPONE
     Indication: Product used for unknown indication
     Dosage: 200 MG
     Route: 065
  2. CARBIDOPA\LEVODOPA [Suspect]
     Active Substance: CARBIDOPA\LEVODOPA
     Indication: Product used for unknown indication
     Dosage: 25/100 MG (AT NIGHT TIME)
     Route: 065
  3. CARBIDOPA\LEVODOPA [Suspect]
     Active Substance: CARBIDOPA\LEVODOPA
     Dosage: 50-200 MG
     Route: 065
  4. IBUPROFEN [Suspect]
     Active Substance: IBUPROFEN
     Indication: Product used for unknown indication
     Dosage: 1 DOSAGE FORM
     Route: 065

REACTIONS (5)
  - Gastritis [Recovering/Resolving]
  - Muscular weakness [Recovering/Resolving]
  - Tachyphrenia [Recovering/Resolving]
  - Nausea [Recovering/Resolving]
  - Initial insomnia [Recovering/Resolving]

NARRATIVE: CASE EVENT DATE: 20210101
